FAERS Safety Report 8560235-3 (Version None)
Quarter: 2012Q3

REPORT INFORMATION
  Report Type: 
  Country: None (occurrence: None)
  Receive Date: 20120802
  Receipt Date: 20120725
  Transmission Date: 20120928
  Serious: Yes (Other)
  Sender: FDA-Public Use
  Company Number: US-ROCHE-1061225

PATIENT
  Sex: Male
  Weight: 81.72 kg

DRUGS (1)
  1. ACCUTANE [Suspect]
     Indication: ACNE CYSTIC
     Dates: start: 19981101, end: 19990401

REACTIONS (5)
  - INFLAMMATORY BOWEL DISEASE [None]
  - ANAL FISTULA [None]
  - CROHN'S DISEASE [None]
  - PERIRECTAL ABSCESS [None]
  - COLITIS ULCERATIVE [None]
